FAERS Safety Report 7154436-9 (Version None)
Quarter: 2010Q4

REPORT INFORMATION
  Report Type: 
  Country: None (occurrence: None)
  Receive Date: 20101213
  Receipt Date: 20101207
  Transmission Date: 20110411
  Serious: Yes (Other)
  Sender: FDA-Public Use
  Company Number: US-RB-001800-10

PATIENT
  Age: 52 Year
  Sex: Female

DRUGS (7)
  1. SUBOXONE [Suspect]
     Indication: DRUG DEPENDENCE
     Route: 060
     Dates: start: 20100101, end: 20100101
  2. SUBOXONE [Suspect]
     Indication: DRUG DEPENDENCE
     Route: 060
     Dates: start: 20101001
  3. SEROQUEL [Suspect]
     Indication: DEPRESSION
     Route: 065
  4. SEROQUEL [Suspect]
     Indication: SLEEP DISORDER
     Route: 065
  5. ARTANE [Suspect]
     Indication: PRODUCT USED FOR UNKNOWN INDICATION
     Route: 065
  6. NAVANE [Suspect]
     Indication: PSYCHOTIC DISORDER
     Route: 065
  7. ABILIFY [Suspect]
     Indication: DEPRESSION
     Route: 065

REACTIONS (15)
  - BALANCE DISORDER [None]
  - COORDINATION ABNORMAL [None]
  - DRUG DEPENDENCE [None]
  - EXCORIATION [None]
  - FALL [None]
  - JOINT SWELLING [None]
  - LOSS OF CONSCIOUSNESS [None]
  - MEMORY IMPAIRMENT [None]
  - OEDEMA PERIPHERAL [None]
  - PANIC ATTACK [None]
  - SLEEP DISORDER [None]
  - SLEEP-RELATED EATING DISORDER [None]
  - SOMNAMBULISM [None]
  - SOMNOLENCE [None]
  - SPEECH DISORDER [None]
